FAERS Safety Report 8464519-9 (Version None)
Quarter: 2012Q2

REPORT INFORMATION
  Report Type: 
  Country: None (occurrence: None)
  Receive Date: 20120620
  Receipt Date: 20120620
  Transmission Date: 20120825
  Serious: Yes (Life-Threatening, Disabling, Other)
  Sender: FDA-Public Use
  Company Number: None

PATIENT
  Sex: Female
  Weight: 54.4316 kg

DRUGS (1)
  1. FLUORESCEIN SODIUM [Suspect]
     Indication: DIAGNOSTIC PROCEDURE
     Dosage: 500 MG X1 IV
     Route: 042
     Dates: start: 20110713, end: 20111019

REACTIONS (7)
  - FEAR [None]
  - MOVEMENT DISORDER [None]
  - VISION BLURRED [None]
  - VISUAL IMPAIRMENT [None]
  - SKIN DISCOLOURATION [None]
  - SKIN HYPERTROPHY [None]
  - PAIN IN EXTREMITY [None]
